FAERS Safety Report 24049639 (Version 1)
Quarter: 2024Q3

REPORT INFORMATION
  Report Type: Spontaneous
  Country: US (occurrence: US)
  Receive Date: 20240704
  Receipt Date: 20240704
  Transmission Date: 20241017
  Serious: Yes (Other)
  Sender: RANBAXY
  Company Number: US-SUN PHARMACEUTICAL INDUSTRIES LTD-2024R1-453947

PATIENT
  Age: 70 Year
  Sex: Male

DRUGS (8)
  1. DOCETAXEL [Suspect]
     Active Substance: DOCETAXEL\DOCETAXEL ANHYDROUS
     Indication: Pleural effusion
     Dosage: UNK
     Route: 065
  2. DOCETAXEL [Suspect]
     Active Substance: DOCETAXEL\DOCETAXEL ANHYDROUS
     Indication: Metastatic neoplasm
  3. PACLITAXEL [Suspect]
     Active Substance: PACLITAXEL
     Indication: Metastatic neoplasm
     Dosage: UNK
     Route: 065
  4. PACLITAXEL [Suspect]
     Active Substance: PACLITAXEL
     Indication: Metastatic neoplasm
  5. PACLITAXEL [Suspect]
     Active Substance: PACLITAXEL
     Indication: Pleural effusion
  6. PEMBROLIZUMAB [Suspect]
     Active Substance: PEMBROLIZUMAB
     Indication: Metastatic neoplasm
     Dosage: UNK
     Route: 065
  7. PEMBROLIZUMAB [Suspect]
     Active Substance: PEMBROLIZUMAB
     Indication: Metastatic neoplasm
  8. PEMBROLIZUMAB [Suspect]
     Active Substance: PEMBROLIZUMAB
     Indication: Pleural effusion

REACTIONS (1)
  - Disease recurrence [Unknown]
